FAERS Safety Report 8428625-7 (Version None)
Quarter: 2012Q2

REPORT INFORMATION
  Report Type: 
  Country: None (occurrence: None)
  Receive Date: 20120606
  Receipt Date: 20120529
  Transmission Date: 20120825
  Serious: Yes (Hospitalization, Other)
  Sender: FDA-Public Use
  Company Number: TIR-01140

PATIENT
  Age: 80 Year
  Sex: Male
  Weight: 99.7913 kg

DRUGS (3)
  1. ASPIRIN [Concomitant]
  2. LEVOTHYROXINE SODIUM [Suspect]
     Indication: HYPOTHYROIDISM
     Dosage: ONE  137MCG CAPSULE DAILY AT 01:00, ORAL
     Route: 048
     Dates: start: 20100301
  3. PLAVIX [Suspect]

REACTIONS (8)
  - GASTROOESOPHAGEAL REFLUX DISEASE [None]
  - OEDEMA PERIPHERAL [None]
  - VERTIGO [None]
  - ARTERIAL OCCLUSIVE DISEASE [None]
  - CHEST PAIN [None]
  - DISORIENTATION [None]
  - LIMB DISCOMFORT [None]
  - MUSCULOSKELETAL DISCOMFORT [None]
